FAERS Safety Report 4863368-8 (Version None)
Quarter: 2005Q4

REPORT INFORMATION
  Report Type: 
  Country: None (occurrence: None)
  Receive Date: 20051222
  Receipt Date: 20041101
  Transmission Date: 20060501
  Serious: No
  Sender: FDA-Public Use
  Company Number: US-GLAXOSMITHKLINE-A0532037A

PATIENT
  Age: 85 Year
  Sex: Male

DRUGS (4)
  1. FLONASE [Suspect]
     Route: 045
  2. BLOOD PRESSURE MEDICATION [Concomitant]
  3. CONCURRENT MEDICATIONS [Concomitant]
  4. SLEEP AID [Concomitant]

REACTIONS (1)
  - DRUG INEFFECTIVE [None]
